FAERS Safety Report 11570544 (Version 2)
Quarter: 2015Q4

REPORT INFORMATION
  Report Type: Report from Study
  Country: PL (occurrence: PL)
  Receive Date: 20150929
  Receipt Date: 20151019
  Transmission Date: 20160304
  Serious: Yes (Hospitalization)
  Sender: FDA-Public Use
  Company Number: PL-BAYER-2015-426407

PATIENT
  Age: 26 Year
  Sex: Male

DRUGS (1)
  1. BETAFERON [Suspect]
     Active Substance: INTERFERON BETA-1B
     Indication: MULTIPLE SCLEROSIS
     Dosage: UNK
     Route: 058
     Dates: start: 20150818, end: 20150930

REACTIONS (6)
  - Asthenia [None]
  - Dizziness [None]
  - Malaise [None]
  - Malaise [None]
  - Disturbance in attention [None]
  - Diplopia [None]

NARRATIVE: CASE EVENT DATE: 2015
